FAERS Safety Report 18162485 (Version 1)
Quarter: 2020Q3

REPORT INFORMATION
  Report Type: Spontaneous
  Country: US (occurrence: US)
  Receive Date: 20200817
  Receipt Date: 20200817
  Transmission Date: 20201103
  Serious: No
  Sender: FDA-Public Use
  Company Number: None

PATIENT
  Age: 59 Year
  Sex: Male

DRUGS (1)
  1. OXALIPLATIN IV SOD 50MG/ML [Suspect]
     Active Substance: OXALIPLATIN
     Route: 048

REACTIONS (3)
  - Musculoskeletal disorder [None]
  - Erythema [None]
  - Pain [None]

NARRATIVE: CASE EVENT DATE: 20200717
